FAERS Safety Report 9060835 (Version 2)
Quarter: 2013Q1

REPORT INFORMATION
  Report Type: Spontaneous
  Country: JP (occurrence: JP)
  Receive Date: 20130204
  Receipt Date: 20130218
  Transmission Date: 20140127
  Serious: Yes (Other)
  Sender: FDA-Public Use
  Company Number: JP-ASTRAZENECA-2013SE05423

PATIENT
  Age: 64 Year
  Sex: Female

DRUGS (6)
  1. SEROQUEL [Suspect]
     Indication: SCHIZOPHRENIA
     Route: 048
     Dates: end: 20130110
  2. SEROQUEL [Suspect]
     Indication: SCHIZOPHRENIA
     Route: 048
     Dates: start: 20130111, end: 20130117
  3. TAKEPRON [Concomitant]
  4. ROHYPNOL [Concomitant]
  5. ESPO [Concomitant]
  6. MAGNESIUM OXIDE [Concomitant]
     Route: 048

REACTIONS (1)
  - Complex partial seizures [Unknown]
